FAERS Safety Report 17917074 (Version 1)
Quarter: 2020Q2

REPORT INFORMATION
  Report Type: Other
  Country: CN (occurrence: CN)
  Receive Date: 20200619
  Receipt Date: 20200619
  Transmission Date: 20200714
  Serious: Yes (Life-Threatening, Other)
  Sender: FDA-Public Use
  Company Number: CN-GE HEALTHCARE LIFE SCIENCES-2020CSU002580

PATIENT

DRUGS (4)
  1. VISIPAQUE [Suspect]
     Active Substance: IODIXANOL
     Indication: ANGIOCARDIOGRAM
     Dosage: 80 ML, SINGLE
     Route: 042
     Dates: start: 20200610, end: 20200610
  2. VISIPAQUE [Suspect]
     Active Substance: IODIXANOL
     Indication: STENT PLACEMENT
  3. BIVALIRUDIN. [Concomitant]
     Active Substance: BIVALIRUDIN
     Indication: ANTICOAGULANT THERAPY
     Dosage: 0.25 G (17.5MG/H)
     Dates: start: 20200610, end: 20200610
  4. VISIPAQUE [Suspect]
     Active Substance: IODIXANOL
     Indication: ARTERIOSCLEROSIS CORONARY ARTERY

REACTIONS (6)
  - Dyspnoea [Recovered/Resolved]
  - Chest discomfort [Recovered/Resolved]
  - Swelling face [Recovered/Resolved]
  - Restlessness [Recovered/Resolved]
  - Laryngeal oedema [Recovered/Resolved]
  - Dysarthria [Recovered/Resolved]

NARRATIVE: CASE EVENT DATE: 20200610
